FAERS Safety Report 17755955 (Version 1)
Quarter: 2020Q2

REPORT INFORMATION
  Report Type: Spontaneous
  Country: US (occurrence: US)
  Receive Date: 20200506
  Receipt Date: 20200506
  Transmission Date: 20200714
  Serious: Yes (Hospitalization)
  Sender: FDA-Public Use
  Company Number: None

PATIENT
  Age: 36 Year
  Sex: Male

DRUGS (6)
  1. CIPROFLOXACN [Concomitant]
     Active Substance: CIPROFLOXACIN
  2. METRONIDAZOL [Concomitant]
     Active Substance: METRONIDAZOLE
  3. OXYCODONE [Concomitant]
     Active Substance: OXYCODONE
  4. FAMOTIDINE. [Concomitant]
     Active Substance: FAMOTIDINE
  5. MELOXICAM. [Concomitant]
     Active Substance: MELOXICAM
  6. HUMIRA [Suspect]
     Active Substance: ADALIMUMAB
     Indication: PSORIASIS
     Dosage: ?          OTHER FREQUENCY:Q14D ;?
     Route: 058
     Dates: start: 20170505

REACTIONS (1)
  - Surgery [None]

NARRATIVE: CASE EVENT DATE: 20200506
